FAERS Safety Report 10404146 (Version 1)
Quarter: 2014Q1

REPORT INFORMATION
  Report Type: Spontaneous
  Country: US (occurrence: None)
  Receive Date: 20130927
  Receipt Date: 20130927
  Transmission Date: 20141002
  Serious: Yes (Other)
  Sender: FDA-Public Use
  Company Number: RB-50889-2013

PATIENT
  Age: 33 Year
  Sex: Female

DRUGS (1)
  1. SUBOXONE 8 MG [Suspect]
     Indication: DRUG DEPENDENCE
     Dosage: SUBOXONE FILM
     Route: 060
     Dates: start: 201301, end: 2013

REACTIONS (5)
  - Bowel movement irregularity [None]
  - Gastrointestinal pain [None]
  - Discomfort [None]
  - Pain [None]
  - Constipation [None]
